FAERS Safety Report 9072850 (Version 1)
Quarter: 2013Q1

REPORT INFORMATION
  Report Type: Report from Study
  Country: US (occurrence: US)
  Receive Date: 20130129
  Receipt Date: 20130129
  Transmission Date: 20140127
  Serious: No
  Sender: FDA-Public Use
  Company Number: US-ABBOTT-12P-163-0922798-00

PATIENT
  Age: 63 Year
  Sex: Female

DRUGS (18)
  1. HUMIRA 40 MG/0.8 ML PEN [Suspect]
     Indication: RHEUMATOID ARTHRITIS
     Dates: start: 20120126
  2. METFORMIN [Concomitant]
     Indication: DIABETES MELLITUS
     Dosage: 500MG, 1 TAB, TWICE DAILY
  3. SEROQUIL [Concomitant]
     Indication: DEPRESSION
     Dosage: 1 AT BEDTIME
  4. FUROSEMIDE [Concomitant]
     Indication: BLOOD PRESSURE
     Dosage: 4MG, TWICE DAILY
  5. RANITIDINE [Concomitant]
     Indication: GASTROOESOPHAGEAL REFLUX DISEASE
     Dosage: 1 AT BEDTIME
  6. PRAVASTATIN [Concomitant]
     Indication: BLOOD CHOLESTEROL INCREASED
     Dosage: 1 AT BEDTIME
  7. PRILOSEC [Concomitant]
     Indication: GASTROINTESTINAL DISORDER
     Dosage: 20MG, 2 CAPSULES, TWICE DAILY
  8. FOLIC ACID [Concomitant]
     Indication: VITAMIN SUPPLEMENTATION
  9. BABY ASPIRIN [Concomitant]
     Indication: PROPHYLAXIS
     Dosage: 81MG
  10. EFFEXOR [Concomitant]
     Indication: BIPOLAR DISORDER
  11. CARISOPRODOL [Concomitant]
     Indication: MUSCLE SPASMS
     Dosage: 250MG, THREE TIMES DAILY, AS NEEDED
  12. KLONOPIN [Concomitant]
     Indication: ARTHRITIS
     Dosage: 1MG, TWICE DAILY, AS NEEDED
  13. NORVASC [Concomitant]
     Indication: BLOOD PRESSURE
  14. LAMICTAL [Concomitant]
     Indication: PRODUCT USED FOR UNKNOWN INDICATION
     Dosage: AT BEDTIME
  15. LANTUS [Concomitant]
     Indication: DIABETES MELLITUS
  16. NOVALOG PEN [Concomitant]
     Indication: DIABETES MELLITUS
  17. VITAMIN D3 [Concomitant]
     Indication: VITAMIN SUPPLEMENTATION
     Dosage: ONCE DAILY
  18. OMEGA 3 [Concomitant]
     Indication: MEDICAL DIET
     Dosage: ONCE DAILY

REACTIONS (2)
  - Injection site pain [Recovered/Resolved]
  - Injection site discomfort [Recovered/Resolved]
